FAERS Safety Report 9210291 (Version 1)
Quarter: 2013Q2

REPORT INFORMATION
  Report Type: Spontaneous
  Country: FR (occurrence: FR)
  Receive Date: 20130404
  Receipt Date: 20130404
  Transmission Date: 20140414
  Serious: Yes (Hospitalization)
  Sender: FDA-Public Use
  Company Number: FR-ROCHE-1210065

PATIENT
  Age: 75 Year
  Sex: Male

DRUGS (8)
  1. XELODA [Suspect]
     Indication: COLORECTAL CANCER
     Route: 048
     Dates: start: 20130116, end: 20130130
  2. AVASTIN [Suspect]
     Indication: COLORECTAL CANCER
     Route: 042
     Dates: start: 20120718, end: 20130206
  3. CORTANCYL [Concomitant]
  4. SEREVENT [Concomitant]
  5. RHINOCORT [Concomitant]
  6. FLIXOTIDE [Concomitant]
  7. FLUOROURACIL [Concomitant]
  8. IRINOTECAN [Concomitant]

REACTIONS (2)
  - Cardiac failure [Not Recovered/Not Resolved]
  - Dysaesthesia [Recovering/Resolving]
